FAERS Safety Report 7332916-0 (Version None)
Quarter: 2011Q1

REPORT INFORMATION
  Report Type: 
  Country: None (occurrence: None)
  Receive Date: 20110228
  Receipt Date: 20110228
  Transmission Date: 20110831
  Serious: Yes (Life-Threatening, Hospitalization, Other)
  Sender: FDA-Public Use
  Company Number: None

PATIENT
  Age: 72 Year
  Sex: Male
  Weight: 145.6046 kg

DRUGS (2)
  1. WYGESIC [Suspect]
     Indication: ANALGESIC THERAPY
     Dosage: 65-650 MG ONE EVERY 6 HOURS PO
     Route: 048
     Dates: start: 20070515, end: 20101215
  2. PROPOXYPHENE HCL AND ACETAMINOPHEN [Suspect]
     Indication: ANALGESIC THERAPY
     Dosage: 65-650 MG ONE EVERY 4 HOURS PO
     Route: 048
     Dates: start: 20061109, end: 20070424

REACTIONS (8)
  - MYOCARDIAL INFARCTION [None]
  - FEELING ABNORMAL [None]
  - HEART VALVE INCOMPETENCE [None]
  - ELECTROCARDIOGRAM ABNORMAL [None]
  - THROMBOSIS [None]
  - ATRIAL FIBRILLATION [None]
  - PRODUCT QUALITY ISSUE [None]
  - CARDIAC MURMUR [None]
